FAERS Safety Report 8362467-6 (Version None)
Quarter: 2012Q2

REPORT INFORMATION
  Report Type: 
  Country: None (occurrence: None)
  Receive Date: 20120514
  Receipt Date: 20120514
  Transmission Date: 20120825
  Serious: Yes (Death)
  Sender: FDA-Public Use
  Company Number: None

PATIENT
  Age: 70 Year
  Sex: Male
  Weight: 86.1834 kg

DRUGS (1)
  1. FLUCONAZOLE [Suspect]
     Indication: CANDIDIASIS
     Dosage: 40 MG 1X DAY PO
     Route: 048
     Dates: start: 20120213, end: 20120217

REACTIONS (2)
  - HEPATIC FAILURE [None]
  - DRUG-INDUCED LIVER INJURY [None]
